FAERS Safety Report 21868036 (Version 1)
Quarter: 2023Q1

REPORT INFORMATION
  Report Type: Spontaneous
  Country: CN (occurrence: CN)
  Receive Date: 20230116
  Receipt Date: 20230116
  Transmission Date: 20230417
  Serious: Yes (Hospitalization, Other)
  Sender: FDA-Public Use
  Company Number: CN-ORGANON-O2301CHN000382

PATIENT
  Age: 21 Year
  Sex: Female
  Weight: 52 kg

DRUGS (9)
  1. FOLLITROPIN BETA [Suspect]
     Active Substance: FOLLITROPIN BETA
     Indication: Ovarian hyperstimulation syndrome
     Dosage: 100IU, QD
     Route: 058
     Dates: start: 20221208, end: 20221216
  2. FOLLITROPIN BETA [Suspect]
     Active Substance: FOLLITROPIN BETA
  3. LETROZOLE [Suspect]
     Active Substance: LETROZOLE
     Indication: Ovarian hyperstimulation syndrome
     Dosage: 2.5 MG, QD
     Dates: start: 20221223, end: 20221223
  4. MENOTROPINS [Suspect]
     Active Substance: MENOTROPINS
     Indication: Ovarian hyperstimulation syndrome
     Dosage: 75 IU, QD
     Route: 030
     Dates: start: 20221217, end: 20221219
  5. MENOTROPINS [Suspect]
     Active Substance: MENOTROPINS
     Dosage: 225 IU, QD
     Route: 030
     Dates: start: 20221220, end: 20221221
  6. FOLLITROPIN BETA [Suspect]
     Active Substance: FOLLITROPIN BETA
     Indication: Ovarian hyperstimulation syndrome
     Dosage: 75 IU, QD
     Route: 058
     Dates: start: 20221220, end: 20221220
  7. CHORIOGONADOTROPIN ALFA [Suspect]
     Active Substance: CHORIOGONADOTROPIN ALFA
     Indication: Ovarian hyperstimulation syndrome
     Dosage: 250 UG, QD
     Route: 058
     Dates: start: 20221221, end: 20221221
  8. SODIUM CHLORIDE [Concomitant]
     Active Substance: SODIUM CHLORIDE
     Indication: Vehicle solution use
     Dosage: 1 ML, QD
     Route: 030
     Dates: start: 20221217, end: 20221221
  9. STERILE WATER [Concomitant]
     Active Substance: WATER
     Indication: Vehicle solution use
     Dosage: 1 ML, QD
     Route: 030
     Dates: start: 20221220, end: 20221220

REACTIONS (6)
  - Ovarian hyperstimulation syndrome [Recovering/Resolving]
  - Abdominal pain [Recovering/Resolving]
  - Vomiting [Recovering/Resolving]
  - Ascites [Recovering/Resolving]
  - Nausea [Recovering/Resolving]
  - Abdominal distension [Recovering/Resolving]

NARRATIVE: CASE EVENT DATE: 20221223
